FAERS Safety Report 8936111 (Version 1)
Quarter: 2012Q4

REPORT INFORMATION
  Report Type: Spontaneous
  Country: US (occurrence: None)
  Receive Date: 20121128
  Receipt Date: 20121128
  Transmission Date: 20130627
  Serious: Yes (Life-Threatening)
  Sender: FDA-Public Use
  Company Number: None

PATIENT
  Age: 48 Year
  Sex: Male
  Weight: 107.5 kg

DRUGS (17)
  1. CAPECITABINE [Suspect]
     Indication: ESOPHAGEAL CANCER METASTATIC
     Dosage: 2500mg; 2wks on, 1 off PO
     Route: 048
     Dates: start: 20120703
  2. BEVACIZUMAB [Suspect]
     Dosage: 7.5mg/kg; Q3wks; IV
     Route: 042
     Dates: start: 20120703
  3. TRASTUZUMAB [Concomitant]
  4. ATENOLOL [Concomitant]
  5. COMPAZINE [Concomitant]
  6. DEXAMETHAZONE [Concomitant]
  7. DIPHENOXYLATE W/ ATROPINE [Concomitant]
  8. FERROUS SULFATE [Concomitant]
  9. LEVOFLOXACIN [Concomitant]
  10. LORAZEPAM [Concomitant]
  11. LOSARTAN [Concomitant]
  12. MULTIVITAMIN [Concomitant]
  13. OMEPRAZOLE [Concomitant]
  14. SIMVASTATIN [Concomitant]
  15. SIMVASTATIN [Concomitant]
  16. VITAMIN C [Concomitant]
  17. ZOFRAN [Concomitant]

REACTIONS (1)
  - Hypertriglyceridaemia [None]
